FAERS Safety Report 13457664 (Version 8)
Quarter: 2017Q3

REPORT INFORMATION
  Report Type: Spontaneous
  Country: FR (occurrence: FR)
  Receive Date: 20170419
  Receipt Date: 20170825
  Transmission Date: 20171127
  Serious: Yes (Hospitalization, Other)
  Sender: FDA-Public Use
  Company Number: FR-PFIZER INC-2017162458

PATIENT
  Age: 35 Year
  Sex: Female

DRUGS (10)
  1. LANSOPRAZOLE. [Suspect]
     Active Substance: LANSOPRAZOLE
     Dosage: UNK, Q3MONTHS
     Route: 048
  2. ADENURIC [Suspect]
     Active Substance: FEBUXOSTAT
     Indication: HYPERURICAEMIA
     Dosage: 80 MG, 1X/DAY
     Route: 048
     Dates: start: 20170321, end: 20170326
  3. NEBIVOLOL. [Suspect]
     Active Substance: NEBIVOLOL
     Dosage: 5 MG, 2X/DAY
     Route: 048
     Dates: start: 20170202
  4. LASILIX /00032601/ [Suspect]
     Active Substance: FUROSEMIDE
     Dosage: 40 MG, DAILY
     Route: 048
     Dates: start: 20170219, end: 20170327
  5. EUPRESSYL /00631801/ [Suspect]
     Active Substance: URAPIDIL
     Dosage: 60 MG, 3X/DAY (180MG A DAY)
     Route: 048
     Dates: start: 20170202
  6. AMLOR [Suspect]
     Active Substance: AMLODIPINE BESYLATE
     Dosage: 10 MG, 1X/DAY
     Route: 048
     Dates: start: 20170202
  7. CORTANCYL [Suspect]
     Active Substance: PREDNISONE
     Dosage: UNK (TAPERING DOSE), QD
     Route: 048
     Dates: start: 20170202, end: 20170325
  8. CORTANCYL [Suspect]
     Active Substance: PREDNISONE
     Dosage: 5 MG, 1X/DAY
     Route: 048
     Dates: start: 20170326
  9. DESOGESTREL [Concomitant]
     Active Substance: DESOGESTREL
     Indication: CONTRACEPTION
     Dosage: UNK
  10. SODIUM HYPOCHLORITE [Concomitant]
     Active Substance: SODIUM HYPOCHLORITE
     Indication: PARONYCHIA
     Dosage: 1X/DAY

REACTIONS (5)
  - Gingivitis [Unknown]
  - Agranulocytosis [Recovering/Resolving]
  - Pyrexia [Recovered/Resolved]
  - Bone marrow toxicity [Recovering/Resolving]
  - Nasal mucosal erosion [Unknown]

NARRATIVE: CASE EVENT DATE: 201703
